APPROVED DRUG PRODUCT: CEFZIL
Active Ingredient: CEFPROZIL
Strength: 125MG/5ML **Federal Register determination that product was not discontinued or withdrawn for safety or effectiveness reasons**
Dosage Form/Route: FOR SUSPENSION;ORAL
Application: N050665 | Product #001
Applicant: CORDEN PHARMA LATINA SPA
Approved: Dec 23, 1991 | RLD: Yes | RS: No | Type: DISCN